FAERS Safety Report 9655654 (Version 3)
Quarter: 2013Q4

REPORT INFORMATION
  Report Type: Spontaneous
  Country: AT (occurrence: AT)
  Receive Date: 20131030
  Receipt Date: 20131120
  Transmission Date: 20140711
  Serious: Yes (Death, Hospitalization, Other)
  Sender: FDA-Public Use
  Company Number: AT-AMGEN-AUTSP2013075367

PATIENT
  Age: 90 Year
  Sex: Female

DRUGS (1)
  1. PROLIA [Suspect]
     Indication: OSTEOPOROSIS
     Dosage: UNK
     Route: 065
     Dates: start: 20111017

REACTIONS (5)
  - Aortic valve stenosis [Fatal]
  - Metabolic disorder [Unknown]
  - Pleural effusion [Unknown]
  - Hyponatraemia [Unknown]
  - Nephrogenic anaemia [Unknown]
